FAERS Safety Report 14537713 (Version 5)
Quarter: 2018Q3

REPORT INFORMATION
  Report Type: Report from Study
  Country: None (occurrence: CO)
  Receive Date: 20180215
  Receipt Date: 20180731
  Transmission Date: 20181010
  Serious: Yes (Hospitalization, Other)
  Sender: FDA-Public Use
  Company Number: CO-ABBVIE-18K-036-2257991-00

PATIENT
  Age: 43 Year
  Sex: Female

DRUGS (1)
  1. HUMIRA [Suspect]
     Active Substance: ADALIMUMAB
     Indication: RHEUMATOID ARTHRITIS
     Route: 058
     Dates: start: 20151008

REACTIONS (7)
  - Haemorrhage [Recovering/Resolving]
  - Dizziness [Recovering/Resolving]
  - Arthralgia [Recovering/Resolving]
  - Ovarian cyst [Recovering/Resolving]
  - Haemoglobin decreased [Recovering/Resolving]
  - Dysmenorrhoea [Recovering/Resolving]
  - Uterine cyst [Not Recovered/Not Resolved]

NARRATIVE: CASE EVENT DATE: 20180129
